FAERS Safety Report 16419959 (Version 1)
Quarter: 2019Q2

REPORT INFORMATION
  Report Type: Spontaneous
  Country: ES (occurrence: ES)
  Receive Date: 20190612
  Receipt Date: 20190612
  Transmission Date: 20190711
  Serious: Yes (Other)
  Sender: FDA-Public Use
  Company Number: ES-BAYER-2019-110155

PATIENT
  Age: 58 Year
  Sex: Female

DRUGS (6)
  1. ALEVE [Suspect]
     Active Substance: NAPROXEN SODIUM
     Indication: COUGH
     Route: 048
  2. PROPALGINA PLUS [ACETAMINOPHEN\ASCORBIC ACID\CHLORPHENIRAMINE MALEATE\DEXTROMETHORPHAN HYDROBROMIDE\PHENYLEPHRINE HYDROCHLORIDE] [Suspect]
     Active Substance: ACETAMINOPHEN\ASCORBIC ACID\CHLORPHENIRAMINE MALEATE\DEXTROMETHORPHAN HYDROBROMIDE\PHENYLEPHRINE HYDROCHLORIDE
     Indication: COUGH
     Route: 048
  3. HIDROCORTISONA [HYDROCORTISONE] [Suspect]
     Active Substance: HYDROCORTISONE
     Dosage: 1 DF, UNK
     Route: 047
     Dates: start: 2019
  4. IBUPROFENO [Suspect]
     Active Substance: IBUPROFEN
     Indication: COUGH
     Route: 048
  5. BROMAZEPAM [Concomitant]
     Active Substance: BROMAZEPAM
     Dosage: 6 MG
     Route: 048
  6. IKERVIS [Suspect]
     Active Substance: CYCLOSPORINE
     Indication: DRY EYE
     Dosage: 1 DF, UNK
     Route: 047
     Dates: start: 20190131, end: 20190215

REACTIONS (2)
  - Swelling face [Recovered/Resolved]
  - Angioedema [Recovered/Resolved]

NARRATIVE: CASE EVENT DATE: 20190215
